FAERS Safety Report 8174792-2 (Version None)
Quarter: 2012Q1

REPORT INFORMATION
  Report Type: 
  Country: None (occurrence: None)
  Receive Date: 20120229
  Receipt Date: 20120222
  Transmission Date: 20120608
  Serious: Yes (Hospitalization, Congenital Anomaly)
  Sender: FDA-Public Use
  Company Number: US-PFIZER INC-2012046652

PATIENT
  Sex: Female
  Weight: 2.85 kg

DRUGS (1)
  1. ZOLOFT [Suspect]
     Dosage: 150 MG, 1X/DAY
     Route: 064

REACTIONS (3)
  - MATERNAL EXPOSURE TIMING UNSPECIFIED [None]
  - PREMATURE BABY [None]
  - CRANIOSYNOSTOSIS [None]
